FAERS Safety Report 9051535 (Version 5)
Quarter: 2013Q3

REPORT INFORMATION
  Report Type: Report from Study
  Country: US (occurrence: US)
  Receive Date: 20130201
  Receipt Date: 20130813
  Transmission Date: 20140515
  Serious: Yes (Life-Threatening, Hospitalization)
  Sender: FDA-Public Use
  Company Number: US-009507513-1003USA00477

PATIENT
  Age: 17 Year
  Sex: Female
  Weight: 81.9 kg

DRUGS (7)
  1. RALTEGRAVIR POTASSIUM [Suspect]
     Indication: HIV INFECTION
     Dosage: 400 MG, BID
     Route: 048
     Dates: start: 20080208, end: 20090114
  2. RALTEGRAVIR POTASSIUM [Suspect]
     Dosage: 400 MG, BID
     Route: 048
     Dates: end: 20100727
  3. VANCOMYCIN [Suspect]
     Indication: PYREXIA
     Dosage: UNK UNK, Q8H
     Route: 042
     Dates: end: 20100512
  4. CEFTAZIDIME [Suspect]
     Indication: PNEUMONIA
     Dosage: UNK UNK, Q8H
     Route: 042
     Dates: end: 20100515
  5. VALTREX [Suspect]
     Indication: PROPHYLAXIS
     Dosage: UNK UNK, BID
     Route: 048
     Dates: end: 20100512
  6. ENALAPRIL MALEATE [Suspect]
     Indication: CARDIOMYOPATHY
     Dosage: UNK UNK, BID
     Route: 048
     Dates: end: 20100512
  7. PENTAMIDINE ISETHIONATE [Concomitant]
     Indication: ANTIFUNGAL PROPHYLAXIS
     Dosage: UNK UNK, QM
     Route: 042
     Dates: start: 201002, end: 20100701

REACTIONS (19)
  - Pancreatitis [Recovered/Resolved]
  - Nystagmus [Recovered/Resolved with Sequelae]
  - Pneumocystis jirovecii pneumonia [Recovered/Resolved]
  - Pneumonia [Recovered/Resolved]
  - Pneumonia [Not Recovered/Not Resolved]
  - Diabetic ketoacidosis [Recovered/Resolved]
  - Haemolytic anaemia [Not Recovered/Not Resolved]
  - Diabetic ketoacidosis [Recovered/Resolved]
  - Pneumonia [Recovered/Resolved with Sequelae]
  - Pneumonia [Recovered/Resolved with Sequelae]
  - Metabolic acidosis [Recovering/Resolving]
  - Pneumonia [Recovering/Resolving]
  - Depression [Not Recovered/Not Resolved]
  - Herpes zoster [Recovered/Resolved with Sequelae]
  - Herpes zoster [Recovered/Resolved with Sequelae]
  - Renal failure acute [Not Recovered/Not Resolved]
  - Suicidal ideation [Recovered/Resolved]
  - Thrombocytopenia [Not Recovered/Not Resolved]
  - Rash pruritic [Recovered/Resolved]
